FAERS Safety Report 8516844-0 (Version None)
Quarter: 2012Q3

REPORT INFORMATION
  Report Type: 
  Country: None (occurrence: None)
  Receive Date: 20120718
  Receipt Date: 20120703
  Transmission Date: 20120928
  Serious: Yes (Life-Threatening)
  Sender: FDA-Public Use
  Company Number: FR-MPIJNJ-2007-02756

PATIENT

DRUGS (6)
  1. DEXAMETHASONE [Suspect]
     Indication: MANTLE CELL LYMPHOMA
     Dosage: 40 MG, UNK
     Route: 048
     Dates: start: 20070618
  2. VELCADE [Suspect]
     Indication: MANTLE CELL LYMPHOMA
     Dosage: 1.30 MG/M2, UNK
     Route: 042
     Dates: start: 20070618, end: 20070618
  3. ATARAX [Concomitant]
     Dosage: 25 MG, UNK
     Route: 048
     Dates: start: 20070618
  4. DOXORUBICIN HCL [Suspect]
     Indication: MANTLE CELL LYMPHOMA
     Dosage: 9 MG/M2, UNK
     Route: 042
     Dates: start: 20070618, end: 20070619
  5. PRIMPERAN TAB [Concomitant]
     Dosage: 30.00 MG, UNK
     Route: 042
     Dates: start: 20070618
  6. ALLOPURINOL [Concomitant]
     Dosage: 300.00 UNK, UNK
     Route: 048
     Dates: start: 20070618

REACTIONS (2)
  - ACUTE PULMONARY OEDEMA [None]
  - ATRIAL FIBRILLATION [None]
